FAERS Safety Report 5119942-7 (Version None)
Quarter: 2006Q3

REPORT INFORMATION
  Report Type: 
  Country: None (occurrence: None)
  Receive Date: 20060928
  Receipt Date: 20060919
  Transmission Date: 20061208
  Serious: Yes (Other)
  Sender: FDA-Public Use
  Company Number: HQWYE992221SEP06

PATIENT
  Age: 64 Year
  Sex: Female

DRUGS (9)
  1. MYLOTARG [Suspect]
     Indication: ACUTE MYELOID LEUKAEMIA RECURRENT
     Dosage: SEE IMAGE
     Route: 041
     Dates: start: 20060613, end: 20060613
  2. MYLOTARG [Suspect]
     Indication: ACUTE MYELOID LEUKAEMIA RECURRENT
     Dosage: SEE IMAGE
     Route: 041
     Dates: start: 20060627, end: 20060627
  3. POTASSIUM CHLORIDE [Concomitant]
  4. VANCOMYCIN HYDROCHLORIDE [Concomitant]
  5. FUNGUARD (MICAFUNGIN SODIUM) [Concomitant]
  6. ASPARA K (ASPARTATE POTASSIUM) [Concomitant]
  7. RYTHMODAN - SLOW RELEASE (DISOPYRAMIDE PHOSPHATE) [Concomitant]
  8. UNSPECIFIED ANTIBIOTIC (UNSPECIFIED ANTIBIOTIC) [Concomitant]
  9. UNSPECIFIED NUTRITIONAL SUPPLEMENT (UNSPECIFIED NUTRITIONAL SUPPLEMENT [Concomitant]

REACTIONS (5)
  - ANAEMIA [None]
  - COLITIS [None]
  - HAEMATURIA [None]
  - NEUTROPENIA [None]
  - SEPSIS [None]
